FAERS Safety Report 18729001 (Version 1)
Quarter: 2021Q1

REPORT INFORMATION
  Report Type: Spontaneous
  Country: GB (occurrence: GB)
  Receive Date: 20210112
  Receipt Date: 20210112
  Transmission Date: 20210419
  Serious: No
  Sender: FDA-Public Use
  Company Number: GB-LUPIN PHARMACEUTICALS INC.-2020-11703

PATIENT
  Age: 27 Year
  Sex: Female

DRUGS (4)
  1. MAGNESIUM GLYCEROPHOSPHATE [Suspect]
     Active Substance: MAGNESIUM GLYCEROPHOSPHATE
     Indication: GITELMAN^S SYNDROME
     Dosage: 4 MILLIMOLE, BID
     Route: 065
  2. POTASSIUM [Suspect]
     Active Substance: POTASSIUM
     Indication: GITELMAN^S SYNDROME
     Dosage: 5 DOSAGE FORM, QID (MODIFIED RELEASE)
     Route: 065
  3. AMILORIDE [Suspect]
     Active Substance: AMILORIDE
     Indication: GITELMAN^S SYNDROME
     Dosage: 5 MILLIGRAM, BID
     Route: 048
  4. SODIUM [Suspect]
     Active Substance: SODIUM
     Indication: GITELMAN^S SYNDROME
     Dosage: 1200 MILLIGRAM, TID
     Route: 065

REACTIONS (1)
  - Exposure during pregnancy [Unknown]
